FAERS Safety Report 7047467-0 (Version None)
Quarter: 2010Q4

REPORT INFORMATION
  Report Type: 
  Country: None (occurrence: None)
  Receive Date: 20101015
  Receipt Date: 20101004
  Transmission Date: 20110411
  Serious: Yes (Other)
  Sender: FDA-Public Use
  Company Number: US-WATSON-2010-13472

PATIENT
  Age: 68 Year
  Sex: Male

DRUGS (3)
  1. MORPHINE SULFATE INJ [Suspect]
     Indication: BACK PAIN
     Dosage: 8 MG, DAILY
     Route: 037
  2. HYDROMORPHONE HYDROCHLORIDE (WATSON LABORATORIES) [Suspect]
     Indication: BACK PAIN
     Dosage: 1-4 MG
     Route: 042
  3. HYDROMORPHONE HYDROCHLORIDE (WATSON LABORATORIES) [Suspect]
     Indication: BREAKTHROUGH PAIN

REACTIONS (2)
  - DELIRIUM [None]
  - SEDATION [None]
